FAERS Safety Report 8246338-1 (Version None)
Quarter: 2012Q1

REPORT INFORMATION
  Report Type: 
  Country: None (occurrence: None)
  Receive Date: 20120329
  Receipt Date: 20120329
  Transmission Date: 20120608
  Serious: Yes (Other)
  Sender: FDA-Public Use
  Company Number: None

PATIENT
  Sex: Female
  Weight: 63.05 kg

DRUGS (2)
  1. OCTREOTIDE - GENERIC [Suspect]
     Indication: CARCINOID TUMOUR
     Dosage: 200 MICROGRAM 3 TIMES A DAY S.Q.
     Route: 058
     Dates: start: 20111226
  2. OCTREOTIDE - GENERIC [Suspect]
     Indication: METASTASES TO LIVER
     Dosage: 200 MICROGRAM 3 TIMES A DAY S.Q.
     Route: 058
     Dates: start: 20111226

REACTIONS (3)
  - DRUG EFFECT DECREASED [None]
  - PRODUCT SUBSTITUTION ISSUE [None]
  - DIARRHOEA [None]
